FAERS Safety Report 12824468 (Version 1)
Quarter: 2016Q4

REPORT INFORMATION
  Report Type: Spontaneous
  Country: US (occurrence: US)
  Receive Date: 20161007
  Receipt Date: 20161007
  Transmission Date: 20170207
  Serious: Yes (Hospitalization)
  Sender: FDA-Public Use
  Company Number: None

PATIENT
  Age: 39 Year
  Sex: Female
  Weight: 63 kg

DRUGS (1)
  1. XELODA [Suspect]
     Active Substance: CAPECITABINE
     Dates: end: 20160714

REACTIONS (4)
  - Small intestinal obstruction [None]
  - Dysuria [None]
  - Abdominal pain lower [None]
  - Frequent bowel movements [None]

NARRATIVE: CASE EVENT DATE: 20160923
